FAERS Safety Report 16121562 (Version 1)
Quarter: 2019Q1

REPORT INFORMATION
  Report Type: Spontaneous
  Country: US (occurrence: US)
  Receive Date: 20190222
  Receipt Date: 20190222
  Transmission Date: 20190418
  Serious: Yes (Disabling)
  Sender: FDA-Public Use
  Company Number: None

PATIENT

DRUGS (1)
  1. LEVOFLOXACIN. [Suspect]
     Active Substance: LEVOFLOXACIN
     Indication: EPIDIDYMITIS
     Dosage: ?          QUANTITY:10 PILLS;?
     Route: 048
     Dates: start: 20180219, end: 20180225

REACTIONS (8)
  - Myalgia [None]
  - Asthenia [None]
  - Gait disturbance [None]
  - Fatigue [None]
  - Guillain-Barre syndrome [None]
  - Tendon pain [None]
  - Arthralgia [None]
  - Pain [None]

NARRATIVE: CASE EVENT DATE: 20180223
